FAERS Safety Report 13144039 (Version 2)
Quarter: 2017Q1

REPORT INFORMATION
  Report Type: Spontaneous
  Country: BR (occurrence: BR)
  Receive Date: 20170124
  Receipt Date: 20170210
  Transmission Date: 20170428
  Serious: Yes (Hospitalization)
  Sender: FDA-Public Use
  Company Number: BR-ROCHE-1883766

PATIENT
  Sex: Female

DRUGS (8)
  1. TRAMAL [Concomitant]
     Active Substance: TRAMADOL
     Indication: SPINAL FRACTURE
     Dosage: 100 MG, BID
     Route: 048
     Dates: start: 2013
  2. ONBREZ BREEZHALER [Suspect]
     Active Substance: INDACATEROL
     Indication: CHRONIC OBSTRUCTIVE PULMONARY DISEASE
     Route: 055
  3. SEEBRI [Suspect]
     Active Substance: GLYCOPYRRONIUM
     Indication: CHRONIC OBSTRUCTIVE PULMONARY DISEASE
     Route: 055
  4. DRAMIN B6 [Concomitant]
     Indication: PRODUCT USED FOR UNKNOWN INDICATION
     Dosage: 1 DF, UNK (1 TABLET BEFORE INGESTING THE TRAMAL)
     Route: 048
     Dates: start: 2013
  5. ARA II [Concomitant]
     Indication: HYPERTENSION
     Dosage: 50 MG, BID
     Route: 048
  6. PERIDAL [Concomitant]
     Indication: GASTROOESOPHAGEAL REFLUX DISEASE
     Dosage: 1 DF, UNK (BEFORE MEALS)
     Route: 048
  7. ONBREZ BREEZHALER [Suspect]
     Active Substance: INDACATEROL
     Route: 055
  8. MODURETIC 5-50 [Concomitant]
     Active Substance: AMILORIDE HYDROCHLORIDE\HYDROCHLOROTHIAZIDE
     Indication: HYPERTENSION
     Dosage: 0.5 DF, Q12H
     Route: 048

REACTIONS (1)
  - Insomnia [Unknown]
